FAERS Safety Report 20077841 (Version 1)
Quarter: 2021Q4

REPORT INFORMATION
  Report Type: Spontaneous
  Country: GB (occurrence: GB)
  Receive Date: 20211116
  Receipt Date: 20211116
  Transmission Date: 20220304
  Serious: Yes (Other)
  Sender: FDA-Public Use
  Company Number: GB-MHRA-EYC 00245264

PATIENT
  Age: 26 Year
  Sex: Male
  Weight: 114 kg

DRUGS (1)
  1. SERTRALINE [Suspect]
     Active Substance: SERTRALINE HYDROCHLORIDE
     Indication: Depression
     Dosage: 50MG, UNK
     Route: 048
     Dates: start: 20200101, end: 20210320

REACTIONS (3)
  - Adverse drug reaction [Recovering/Resolving]
  - Amnesia [Recovering/Resolving]
  - Dysphemia [Unknown]

NARRATIVE: CASE EVENT DATE: 20200311
